FAERS Safety Report 5421415-9 (Version None)
Quarter: 2007Q3

REPORT INFORMATION
  Report Type: 
  Country: None (occurrence: None)
  Receive Date: 20070718
  Receipt Date: 20061227
  Transmission Date: 20080115
  Serious: Yes (Hospitalization, Other)
  Sender: FDA-Public Use
  Company Number: 2007000569

PATIENT
  Age: 72 Year
  Sex: Male
  Weight: 97.5 kg

DRUGS (3)
  1. CELEBREX [Suspect]
     Indication: ARTHRITIS
     Dosage: 200 MG, 2 IN 1 D)
     Dates: start: 20030328, end: 20031222
  2. ACETYLSALICYLIC ACID SRT [Concomitant]
  3. VIOXX [Concomitant]

REACTIONS (1)
  - MYOCARDIAL INFARCTION [None]
